FAERS Safety Report 16808668 (Version 2)
Quarter: 2019Q3

REPORT INFORMATION
  Report Type: Spontaneous
  Country: CN (occurrence: CN)
  Receive Date: 20190916
  Receipt Date: 20190918
  Transmission Date: 20191005
  Serious: Yes (Other)
  Sender: FDA-Public Use
  Company Number: CN-ASTRAZENECA-2019SF27600

PATIENT
  Age: 57 Year
  Sex: Female

DRUGS (1)
  1. IRESSA [Suspect]
     Active Substance: GEFITINIB
     Indication: NON-SMALL CELL LUNG CANCER
     Dosage: 1 TABLET DAILY
     Route: 048
     Dates: start: 201803, end: 2019

REACTIONS (5)
  - Neoplasm progression [Unknown]
  - Mass [Recovered/Resolved]
  - Malignant neoplasm progression [Unknown]
  - Drug resistance [Unknown]
  - Diarrhoea [Recovered/Resolved]
